FAERS Safety Report 14606871 (Version 1)
Quarter: 2018Q1

REPORT INFORMATION
  Report Type: Spontaneous
  Country: CH (occurrence: CH)
  Receive Date: 20180307
  Receipt Date: 20180307
  Transmission Date: 20180509
  Serious: Yes (Death, Life-Threatening, Other)
  Sender: FDA-Public Use
  Company Number: CH-TAKEDA-2018MPI002291

PATIENT
  Sex: Male

DRUGS (1)
  1. NINLARO [Suspect]
     Active Substance: IXAZOMIB CITRATE
     Indication: PLASMA CELL MYELOMA
     Dosage: UNK
     Route: 065

REACTIONS (6)
  - Pericardial effusion [Unknown]
  - Generalised oedema [Unknown]
  - Death [Fatal]
  - Pleural effusion [Unknown]
  - Renal failure [Unknown]
  - Hypotension [Unknown]
